FAERS Safety Report 11228151 (Version 1)
Quarter: 2015Q2

REPORT INFORMATION
  Report Type: Spontaneous
  Country: JP (occurrence: JP)
  Receive Date: 20150630
  Receipt Date: 20150630
  Transmission Date: 20150821
  Serious: Yes (Other)
  Sender: FDA-Public Use
  Company Number: JP-TEVA-572551ISR

PATIENT
  Age: 84 Year
  Sex: Female

DRUGS (9)
  1. CYLOCIDE [Concomitant]
     Active Substance: CYTARABINE
     Indication: ACUTE MYELOID LEUKAEMIA
  2. ADALAT CC [Concomitant]
     Active Substance: NIFEDIPINE
     Indication: HYPERTENSION
     Dosage: 20 MILLIGRAM DAILY;
     Route: 048
     Dates: start: 20141002
  3. ACLACINON [Concomitant]
     Active Substance: ACLARUBICIN HYDROCHLORIDE
     Indication: ACUTE MYELOID LEUKAEMIA
  4. ROZEREM [Concomitant]
     Active Substance: RAMELTEON
     Indication: INSOMNIA
     Dosage: 4 MILLIGRAM DAILY;
     Route: 048
     Dates: start: 20141002
  5. NATRIX [Concomitant]
     Active Substance: INDAPAMIDE
     Indication: HYPERTENSION
     Dosage: .5 MILLIGRAM DAILY;
     Route: 048
     Dates: start: 20141002
  6. ACLACINON [Concomitant]
     Active Substance: ACLARUBICIN HYDROCHLORIDE
     Indication: MYELODYSPLASTIC SYNDROME
     Dosage: 15 MILLIGRAM DAILY;
     Route: 042
     Dates: start: 20141002, end: 20141005
  7. FILGRASTIM BS INJ. NK [Suspect]
     Active Substance: FILGRASTIM
     Indication: NEUTROPENIA
     Dosage: DAILY DOSE: 150 MICROG/BODY
     Route: 058
     Dates: start: 20141002, end: 20141015
  8. CYLOCIDE [Concomitant]
     Active Substance: CYTARABINE
     Indication: MYELODYSPLASTIC SYNDROME
     Dosage: 28 MILLIGRAM DAILY;
     Route: 058
     Dates: start: 20141002, end: 20141015
  9. HIRNAMIN [Concomitant]
     Active Substance: PHENOTHIAZINE
     Indication: INSOMNIA
     Dosage: 2.5 MILLIGRAM DAILY;
     Route: 048
     Dates: start: 20141002

REACTIONS (3)
  - Platelet count decreased [Not Recovered/Not Resolved]
  - Blood lactate dehydrogenase increased [Not Recovered/Not Resolved]
  - Arthralgia [Not Recovered/Not Resolved]

NARRATIVE: CASE EVENT DATE: 20141004
